FAERS Safety Report 13723338 (Version 2)
Quarter: 2017Q3

REPORT INFORMATION
  Report Type: Spontaneous
  Country: US (occurrence: US)
  Receive Date: 20170706
  Receipt Date: 20170829
  Transmission Date: 20171127
  Serious: Yes (Other)
  Sender: FDA-Public Use
  Company Number: US-JNJFOC-20170626875

PATIENT
  Age: 27 Year
  Sex: Female
  Weight: 57.61 kg

DRUGS (7)
  1. REMICADE [Suspect]
     Active Substance: INFLIXIMAB
     Indication: COLITIS ULCERATIVE
     Route: 042
     Dates: start: 201607
  2. DIAZOLE [Concomitant]
     Route: 065
  3. IMURAN [Concomitant]
     Active Substance: AZATHIOPRINE
     Route: 065
  4. CALCIUM ASCORBATE [Concomitant]
     Active Substance: CALCIUM ASCORBATE
     Route: 065
  5. BIOTIN [Concomitant]
     Active Substance: BIOTIN
     Route: 065
  6. ZINC. [Concomitant]
     Active Substance: ZINC
     Route: 065
  7. VITAMIN D [Concomitant]
     Active Substance: CHOLECALCIFEROL
     Route: 065

REACTIONS (2)
  - Drug ineffective [Not Recovered/Not Resolved]
  - Colitis ulcerative [Not Recovered/Not Resolved]

NARRATIVE: CASE EVENT DATE: 20161206
